FAERS Safety Report 9659270 (Version 3)
Quarter: 2014Q1

REPORT INFORMATION
  Report Type: Spontaneous
  Country: US (occurrence: US)
  Receive Date: 20131031
  Receipt Date: 20140121
  Transmission Date: 20141002
  Serious: Yes (Other)
  Sender: FDA-Public Use
  Company Number: US-JNJFOC-20131013149

PATIENT
  Sex: Male
  Weight: 40.82 kg

DRUGS (2)
  1. CHILDRENS TYLENOL [Suspect]
     Indication: PYREXIA
     Dosage: 2 TEASPOONS ONCE DAILY
     Route: 048
     Dates: end: 2013
  2. CHILDRENS TYLENOL [Suspect]
     Indication: PYREXIA
     Dosage: 2 TEASPOONS ONCE DAILY
     Route: 048
     Dates: end: 20131020

REACTIONS (4)
  - Hallucination [Recovered/Resolved]
  - Amnesia [Recovered/Resolved]
  - Fear [Recovered/Resolved]
  - Hyperhidrosis [Recovered/Resolved]
